FAERS Safety Report 18198546 (Version 1)
Quarter: 2020Q3

REPORT INFORMATION
  Report Type: Spontaneous
  Country: CN (occurrence: CN)
  Receive Date: 20200826
  Receipt Date: 20200826
  Transmission Date: 20201103
  Serious: Yes (Hospitalization)
  Sender: FDA-Public Use
  Company Number: CN-PFIZER INC-2020326547

PATIENT
  Age: 32 Year
  Sex: Female

DRUGS (3)
  1. SUNITINIB MALATE. [Suspect]
     Active Substance: SUNITINIB MALATE
     Indication: SOFT TISSUE SARCOMA
     Dosage: 25 MG, DAILY
     Dates: start: 20150721, end: 201601
  2. SUNITINIB MALATE. [Suspect]
     Active Substance: SUNITINIB MALATE
     Dosage: 12.5 MG, DAILY
     Dates: end: 2016
  3. SUNITINIB MALATE. [Suspect]
     Active Substance: SUNITINIB MALATE
     Indication: SARCOMA
     Dosage: 12.5 MG, DAILY
     Dates: start: 2016, end: 20160221

REACTIONS (3)
  - Uterine haemorrhage [Recovered/Resolved]
  - Product use in unapproved indication [Unknown]
  - Off label use [Unknown]

NARRATIVE: CASE EVENT DATE: 20150803
